FAERS Safety Report 5566488-8 (Version None)
Quarter: 2007Q4

REPORT INFORMATION
  Report Type: 
  Country: None (occurrence: None)
  Receive Date: 20071219
  Receipt Date: 20071214
  Transmission Date: 20080405
  Serious: Yes (Other)
  Sender: FDA-Public Use
  Company Number: US-AVENTIS-200718698US

PATIENT
  Sex: Female

DRUGS (1)
  1. LASIX [Suspect]
     Dosage: DOSE: UNK

REACTIONS (1)
  - RENAL FAILURE [None]
